FAERS Safety Report 13551248 (Version 2)
Quarter: 2017Q2

REPORT INFORMATION
  Report Type: Spontaneous
  Country: US (occurrence: US)
  Receive Date: 20170516
  Receipt Date: 20170518
  Transmission Date: 20170830
  Serious: Yes (Hospitalization, Other)
  Sender: FDA-Public Use
  Company Number: US-JNJFOC-20170511429

PATIENT
  Age: 77 Year
  Sex: Female
  Weight: 73.85 kg

DRUGS (2)
  1. XARELTO [Suspect]
     Active Substance: RIVAROXABAN
     Indication: THROMBOSIS
     Route: 048
     Dates: start: 2016
  2. PREDNISONE. [Suspect]
     Active Substance: PREDNISONE
     Indication: RHEUMATOID ARTHRITIS
     Route: 048

REACTIONS (14)
  - Abdominal distension [Not Recovered/Not Resolved]
  - Eczema [Not Recovered/Not Resolved]
  - Productive cough [Unknown]
  - Dizziness [Not Recovered/Not Resolved]
  - Arthropathy [Unknown]
  - Rash [Unknown]
  - Cough [Not Recovered/Not Resolved]
  - Musculoskeletal disorder [Unknown]
  - Headache [Not Recovered/Not Resolved]
  - Haemorrhoids [Recovered/Resolved]
  - Haemorrhage [Recovered/Resolved]
  - Dyspnoea [Unknown]
  - Peripheral swelling [Recovered/Resolved]
  - Localised infection [Not Recovered/Not Resolved]

NARRATIVE: CASE EVENT DATE: 2017
